FAERS Safety Report 5803025-4 (Version None)
Quarter: 2008Q2

REPORT INFORMATION
  Report Type: 
  Country: None (occurrence: None)
  Receive Date: 20080625
  Receipt Date: 20080423
  Transmission Date: 20081010
  Serious: Yes (Other)
  Sender: FDA-Public Use
  Company Number: DSU-2008-00605

PATIENT
  Sex: Male

DRUGS (4)
  1. BENICAR [Suspect]
     Indication: HYPERTENSION
     Dosage: 40 MG, (40 MG, QD) ,PER ORAL
     Route: 048
     Dates: start: 20050101, end: 20080421
  2. AMBIEN [Concomitant]
  3. LEXAPRO (ESCITALOPRAM OXALATE) (ESCITALOPRAM OXALATE) [Concomitant]
  4. PREVACID (LANSOPRAZOLE) (LANSOPRAZOLE) [Concomitant]

REACTIONS (4)
  - ANGIOEDEMA [None]
  - OEDEMA PERIPHERAL [None]
  - PRURITUS [None]
  - RASH [None]
